FAERS Safety Report 13372865 (Version 1)
Quarter: 2017Q1

REPORT INFORMATION
  Report Type: Spontaneous
  Country: US (occurrence: US)
  Receive Date: 20170325
  Receipt Date: 20170325
  Transmission Date: 20170429
  Serious: Yes (Disabling)
  Sender: FDA-Public Use
  Company Number: None

PATIENT
  Age: 49 Year
  Sex: Female
  Weight: 72.45 kg

DRUGS (9)
  1. LEVORA [Concomitant]
     Active Substance: ETHINYL ESTRADIOL\LEVONORGESTREL
  2. VITAMINS E [Concomitant]
  3. OPTIVITE PMT (A MULTI-VITAMIN) [Concomitant]
  4. CIPRO [Suspect]
     Active Substance: CIPROFLOXACIN HYDROCHLORIDE
     Indication: SINUSITIS
     Route: 048
     Dates: start: 20170123, end: 20170131
  5. MONTELUCAST [Concomitant]
     Active Substance: MONTELUKAST SODIUM
  6. FISH OIL [Concomitant]
     Active Substance: FISH OIL
  7. VITAMINS C [Concomitant]
  8. ALBUTEROL. [Concomitant]
     Active Substance: ALBUTEROL
  9. ADVAIR HFA [Concomitant]
     Active Substance: FLUTICASONE PROPIONATE\SALMETEROL XINAFOATE

REACTIONS (4)
  - Osteoarthritis [None]
  - Ligament rupture [None]
  - Meniscus injury [None]
  - Arthralgia [None]

NARRATIVE: CASE EVENT DATE: 20170214
